FAERS Safety Report 4562381-8 (Version None)
Quarter: 2005Q1

REPORT INFORMATION
  Report Type: 
  Country: None (occurrence: None)
  Receive Date: 20050124
  Receipt Date: 20050114
  Transmission Date: 20050727
  Serious: Yes (Disabling, Other)
  Sender: FDA-Public Use
  Company Number: 163-20785-04120270

PATIENT
  Age: 81 Year
  Sex: Male
  Weight: 177.5 kg

DRUGS (7)
  1. THALOMID (THALIDOMIDE) (200 MILLIGRAMS, CAPSULES) [Suspect]
     Indication: MULTIPLE MYELOMA
     Dosage: SEE IMAGE
     Route: 048
     Dates: start: 20040914, end: 20040920
  2. THALOMID (THALIDOMIDE) (200 MILLIGRAMS, CAPSULES) [Suspect]
     Indication: MULTIPLE MYELOMA
     Dosage: SEE IMAGE
     Route: 048
     Dates: start: 20040921, end: 20041018
  3. THALOMID (THALIDOMIDE) (200 MILLIGRAMS, CAPSULES) [Suspect]
     Indication: MULTIPLE MYELOMA
     Dosage: SEE IMAGE
     Route: 048
     Dates: start: 20041019, end: 20041101
  4. THALOMID (THALIDOMIDE) (200 MILLIGRAMS, CAPSULES) [Suspect]
     Indication: MULTIPLE MYELOMA
     Dosage: SEE IMAGE
     Route: 048
     Dates: start: 20041102, end: 20041118
  5. PROCRIT (ERYTHROPOIETIN) [Concomitant]
  6. PROSCAR [Concomitant]
  7. VITAMIN B6 [Concomitant]

REACTIONS (8)
  - BLOOD IMMUNOGLOBULIN G INCREASED [None]
  - DIALYSIS [None]
  - GRANULOCYTE COUNT DECREASED [None]
  - HAEMATOCRIT DECREASED [None]
  - HAEMOGLOBIN DECREASED [None]
  - PLATELET COUNT DECREASED [None]
  - RENAL FAILURE [None]
  - WHITE BLOOD CELL COUNT DECREASED [None]
